FAERS Safety Report 7875626-3 (Version None)
Quarter: 2011Q4

REPORT INFORMATION
  Report Type: 
  Country: None (occurrence: None)
  Receive Date: 20111031
  Receipt Date: 20111024
  Transmission Date: 20120403
  Serious: Yes (Hospitalization)
  Sender: FDA-Public Use
  Company Number: US-B.I. PHARMACEUTICALS,INC./RIDGEFIELD-2011-BP-24863BP

PATIENT
  Age: 76 Year
  Sex: Male

DRUGS (2)
  1. PRADAXA [Suspect]
     Indication: ATRIAL FIBRILLATION
     Dates: end: 20110901
  2. CHEMOTHERAPY [Concomitant]

REACTIONS (5)
  - WOUND HAEMORRHAGE [None]
  - EPISTAXIS [None]
  - HAEMATOCHEZIA [None]
  - MOUTH HAEMORRHAGE [None]
  - BLOOD URINE PRESENT [None]
